FAERS Safety Report 16917692 (Version 1)
Quarter: 2019Q4

REPORT INFORMATION
  Report Type: Spontaneous
  Country: GB (occurrence: GB)
  Receive Date: 20191015
  Receipt Date: 20191015
  Transmission Date: 20200122
  Serious: Yes (Other)
  Sender: FDA-Public Use
  Company Number: GB-TEVA-2019-GB-1120738

PATIENT
  Age: 61 Year
  Sex: Female
  Weight: 109 kg

DRUGS (20)
  1. CLARITHROMYCIN. [Suspect]
     Active Substance: CLARITHROMYCIN
     Dosage: 500 MILLIGRAM EVERY 12 HOURS
     Dates: start: 20190911
  2. AMOXICILLIN. [Concomitant]
     Active Substance: AMOXICILLIN
     Dosage: 3 DOSAGE FORM PER DAY
     Dates: start: 20190916
  3. TRAMADOL. [Concomitant]
     Active Substance: TRAMADOL
     Dosage: TAKE 1 OR 2 AS DIRECTED, UP TO FOUR TIMES DAILY
     Dates: start: 20190424
  4. ZEROBASE [Concomitant]
     Active Substance: MINERAL OIL\PARAFFIN
     Dosage: APPLY LIBERALLY TO ALL AREAS OF DRY SKIN AT LEA...
     Dates: start: 20180829
  5. HUMULIN L [Concomitant]
     Active Substance: INSULIN HUMAN
     Dosage: USE AS DIRECTED
     Dates: start: 20180829
  6. PREDNISOLONE. [Concomitant]
     Active Substance: PREDNISOLONE
     Dosage: 6 DOSAGE FORM PER DAY
     Dates: start: 20190916
  7. VENTOLIN [Concomitant]
     Active Substance: ALBUTEROL SULFATE
     Dosage: 2 DOSAGE FORMS
     Route: 055
     Dates: start: 20180829
  8. TRIMETHOPRIM. [Concomitant]
     Active Substance: TRIMETHOPRIM
     Dosage: 1 DOSAGE FORM EVERY 12 HOURS
     Dates: start: 20190912, end: 20190915
  9. EDOXABAN [Concomitant]
     Active Substance: EDOXABAN TOSYLATE
     Dosage: TO THIN THE BLOOD (1 DOSAGE FORM PER DAY)
     Dates: start: 20190206
  10. ATORVASTATIN [Concomitant]
     Active Substance: ATORVASTATIN
     Indication: BLOOD CHOLESTEROL INCREASED
     Dosage: 1 DOSAGE FORM PER DAY
     Dates: start: 20180829
  11. TRIMBOW [Concomitant]
     Active Substance: BECLOMETHASONE DIPROPIONATE\FORMOTEROL FUMARATE\GLYCOPYRROLATE
     Dosage: 4 DOSAGE FORM PER DAY
     Route: 055
     Dates: start: 20180829
  12. LISINOPRIL. [Concomitant]
     Active Substance: LISINOPRIL
     Dosage: 1 DOSAGE FORM PER DAY
     Dates: start: 20180829
  13. NICORANDIL [Concomitant]
     Active Substance: NICORANDIL
     Dosage: 2 DOSAGE FORM PER DAY
     Dates: start: 20180829
  14. LANSOPRAZOLE. [Concomitant]
     Active Substance: LANSOPRAZOLE
     Dosage: 1 DOSAGE FORM PER DAY
     Dates: start: 20180829
  15. METFORMIN [Concomitant]
     Active Substance: METFORMIN HYDROCHLORIDE
     Dosage: TAKE TWO TABLETS IN  MORNING AND  TWO TABS IN E...
     Dates: start: 20180829
  16. CHEMYDUR XL [Concomitant]
     Active Substance: ISOSORBIDE MONONITRATE
     Dosage: AS PER CARDIOLOGY ADVICE (1 DOSAGE FORM PER DAY)
     Dates: start: 20190206
  17. LIRAGLUTIDE [Concomitant]
     Active Substance: LIRAGLUTIDE
     Dosage: 0.6 MILLIGRAM PER DAY
     Route: 058
     Dates: start: 20180829
  18. RANOLAZINE. [Concomitant]
     Active Substance: RANOLAZINE
     Dosage: 2 DOSAGE FORM PER DAY
     Dates: start: 20190828
  19. IVABRADINE [Concomitant]
     Active Substance: IVABRADINE
     Dosage: 2 DOSAGE FORM PER DAY
     Dates: start: 20190213
  20. AMITRIPTYLINE HYDROCHLORIDE. [Concomitant]
     Active Substance: AMITRIPTYLINE HYDROCHLORIDE
     Dosage: AT NIGHT (2 DOSAGE FORM PER DAY)
     Dates: start: 20180829

REACTIONS (1)
  - Palpitations [Recovered/Resolved]

NARRATIVE: CASE EVENT DATE: 20190916
